FAERS Safety Report 23666691 (Version 1)
Quarter: 2024Q1

REPORT INFORMATION
  Report Type: Report from Study
  Country: US (occurrence: US)
  Receive Date: 20240325
  Receipt Date: 20240325
  Transmission Date: 20240409
  Serious: Yes (Other)
  Sender: FDA-Public Use
  Company Number: US-ABBVIE-5651232

PATIENT
  Sex: Female

DRUGS (3)
  1. HUMIRA [Suspect]
     Active Substance: ADALIMUMAB
     Indication: Rheumatoid arthritis
     Dosage: FORM STRENGTH: 40 MILLIGRAM
     Route: 058
     Dates: start: 20230517
  2. HUMIRA [Suspect]
     Active Substance: ADALIMUMAB
     Dosage: FORM STRENGTH: 40 MILLIGRAM
     Route: 058
  3. PLAQUENIL [Concomitant]
     Active Substance: HYDROXYCHLOROQUINE SULFATE
     Indication: Product used for unknown indication

REACTIONS (16)
  - Vascular occlusion [Unknown]
  - Malaise [Unknown]
  - Weight increased [Unknown]
  - Intervertebral disc degeneration [Unknown]
  - Dyspnoea [Not Recovered/Not Resolved]
  - Post-acute COVID-19 syndrome [Unknown]
  - Back pain [Unknown]
  - Osteoarthritis [Unknown]
  - Lung disorder [Unknown]
  - Chronic obstructive pulmonary disease [Unknown]
  - Intervertebral disc protrusion [Unknown]
  - COVID-19 [Recovered/Resolved]
  - Spinal osteoarthritis [Unknown]
  - Gait disturbance [Unknown]
  - Musculoskeletal disorder [Unknown]
  - COVID-19 [Unknown]

NARRATIVE: CASE EVENT DATE: 20210101
